FAERS Safety Report 4936332-8 (Version None)
Quarter: 2006Q1

REPORT INFORMATION
  Report Type: 
  Country: None (occurrence: None)
  Receive Date: 20060127
  Receipt Date: 20051215
  Transmission Date: 20060701
  Serious: Yes (Other)
  Sender: FDA-Public Use
  Company Number: 2005154577

PATIENT
  Age: 73 Year
  Sex: Female
  Weight: 63.5036 kg

DRUGS (4)
  1. LYRICA [Suspect]
     Indication: JOINT INJURY
     Dosage: 75 MG (75 MG,ONCE),ORAL
     Route: 048
     Dates: start: 20051108, end: 20051108
  2. THYROID TAB [Concomitant]
  3. ZEBETA [Concomitant]
  4. KLONOPIN [Concomitant]

REACTIONS (5)
  - ASTHENIA [None]
  - DIZZINESS [None]
  - FEELING ABNORMAL [None]
  - MUSCLE DISORDER [None]
  - MYALGIA [None]
